FAERS Safety Report 5262465-5 (Version None)
Quarter: 2007Q1

REPORT INFORMATION
  Report Type: 
  Country: None (occurrence: None)
  Receive Date: 20070309
  Receipt Date: 20070309
  Transmission Date: 20070707
  Serious: Yes (Life-Threatening, Hospitalization)
  Sender: FDA-Public Use
  Company Number: None

PATIENT
  Sex: Female

DRUGS (2)
  1. ISONIAZID [Suspect]
     Indication: CHEST X-RAY NORMAL
     Dosage: 300MG ONCE DAILY PO
     Route: 048
     Dates: start: 20060602, end: 20061203
  2. ISONIAZID [Suspect]
     Indication: TUBERCULOSIS SKIN TEST POSITIVE
     Dosage: 300MG ONCE DAILY PO
     Route: 048
     Dates: start: 20060602, end: 20061203

REACTIONS (6)
  - ACUTE HEPATIC FAILURE [None]
  - COMA [None]
  - HEPATIC ENCEPHALOPATHY [None]
  - HEPATITIS ACUTE [None]
  - LIVER TRANSPLANT [None]
  - RENAL FAILURE ACUTE [None]
